FAERS Safety Report 5309372-7 (Version None)
Quarter: 2007Q2

REPORT INFORMATION
  Report Type: 
  Country: None (occurrence: None)
  Receive Date: 20070425
  Receipt Date: 20070425
  Transmission Date: 20071010
  Serious: No
  Sender: FDA-Public Use
  Company Number: None

PATIENT
  Age: 63 Year
  Sex: Male
  Weight: 101.6057 kg

DRUGS (10)
  1. NIFEDIPINE [Suspect]
     Indication: HYPERTENSION
     Dosage: 90 MG DAILY PO
     Route: 048
     Dates: start: 20050106, end: 20061127
  2. ATENOLOL [Concomitant]
  3. IBUPROFEN [Concomitant]
  4. IPRATROPIUM BROMIDE [Concomitant]
  5. MOMETASONE FUROATE [Concomitant]
  6. TRIAMTERENE AND HYDROCHLOROTHIAZIDE [Concomitant]
  7. ASCORBIC ACID [Concomitant]
  8. FOLIC ACID [Concomitant]
  9. ASPIRIN [Concomitant]
  10. VARDENAFIL [Concomitant]

REACTIONS (1)
  - GINGIVAL HYPERPLASIA [None]
